FAERS Safety Report 5217925-X (Version None)
Quarter: 2007Q1

REPORT INFORMATION
  Report Type: 
  Country: None (occurrence: None)
  Receive Date: 20061130
  Receipt Date: 20060815
  Transmission Date: 20070707
  Serious: Yes (Hospitalization)
  Sender: FDA-Public Use
  Company Number: US200608001853

PATIENT
  Sex: Female
  Weight: 58 kg

DRUGS (4)
  1. ZYPREXA [Suspect]
     Indication: DRUG USE FOR UNKNOWN INDICATION
     Dosage: 10 MG
     Dates: start: 20030801, end: 20050801
  2. TOPAMAX [Concomitant]
  3. LEXAPRO [Concomitant]
  4. PAROXETINE [Concomitant]

REACTIONS (1)
  - PANCREATITIS [None]
